FAERS Safety Report 9122589 (Version 3)
Quarter: 2013Q1

REPORT INFORMATION
  Report Type: Spontaneous
  Country: JP (occurrence: JP)
  Receive Date: 20130115
  Receipt Date: 20130308
  Transmission Date: 20140127
  Serious: Yes (Hospitalization, Other)
  Sender: FDA-Public Use
  Company Number: JP-BAXTER-2013BAX001599

PATIENT
  Age: 38 Year
  Sex: Female

DRUGS (2)
  1. ENDOXAN 1000 MG, POUDRE POUR SOLUTION INJECTABLE [Suspect]
     Indication: BREAST CANCER
     Route: 041
     Dates: end: 20090929
  2. EPIRUBICIN HYDROCHLORIDE [Suspect]
     Indication: BREAST CANCER
     Route: 065
     Dates: end: 20090929

REACTIONS (6)
  - Exposure during pregnancy [Unknown]
  - Neutrophil count decreased [Recovered/Resolved]
  - Premature rupture of membranes [Unknown]
  - Nail disorder [Unknown]
  - Maternal drugs affecting foetus [Unknown]
  - Premature delivery [Unknown]
